FAERS Safety Report 15177792 (Version 1)
Quarter: 2018Q3

REPORT INFORMATION
  Report Type: Report from Study
  Country: US (occurrence: US)
  Receive Date: 20180720
  Receipt Date: 20180720
  Transmission Date: 20181010
  Serious: No
  Sender: FDA-Public Use
  Company Number: US-AMGEN-USASL2018080399

PATIENT
  Age: 63 Year
  Sex: Female

DRUGS (1)
  1. REPATHA [Suspect]
     Active Substance: EVOLOCUMAB
     Indication: PRODUCT USED FOR UNKNOWN INDICATION
     Dosage: 140 MG, Q2WK
     Route: 058
     Dates: start: 20180605

REACTIONS (5)
  - Back pain [Recovered/Resolved]
  - Pain in extremity [Recovered/Resolved]
  - Muscular weakness [Unknown]
  - Mobility decreased [Unknown]
  - Gait inability [Recovered/Resolved]

NARRATIVE: CASE EVENT DATE: 20180606
